FAERS Safety Report 5147114-9 (Version None)
Quarter: 2006Q4

REPORT INFORMATION
  Report Type: 
  Country: None (occurrence: None)
  Receive Date: 20061103
  Receipt Date: 20061026
  Transmission Date: 20070319
  Serious: Yes (Life-Threatening, Hospitalization, Other)
  Sender: FDA-Public Use
  Company Number: GXKR2006DE06716

PATIENT
  Age: 62 Year
  Sex: Male

DRUGS (3)
  1. PREDNISOLONE [Suspect]
     Indication: COLITIS ULCERATIVE
     Dosage: SEE IMAGE
  2. METFORMIN HCL [Concomitant]
  3. INSULIN (INSULIN) [Concomitant]

REACTIONS (17)
  - ACIDOSIS [None]
  - ADRENOCORTICAL INSUFFICIENCY ACUTE [None]
  - ASTHENIA [None]
  - DEHYDRATION [None]
  - DIABETES MELLITUS [None]
  - DRUG WITHDRAWAL SYNDROME [None]
  - HYPERKALAEMIA [None]
  - HYPERPYREXIA [None]
  - HYPONATRAEMIA [None]
  - HYPOTONIA [None]
  - HYPOVOLAEMIC SHOCK [None]
  - MUSCULOSKELETAL STIFFNESS [None]
  - NAUSEA [None]
  - OLIGURIA [None]
  - PYODERMA GANGRENOSUM [None]
  - SOMNOLENCE [None]
  - VOMITING [None]
